FAERS Safety Report 7551580-9 (Version None)
Quarter: 2011Q2

REPORT INFORMATION
  Report Type: 
  Country: None (occurrence: None)
  Receive Date: 20110616
  Receipt Date: 20110603
  Transmission Date: 20111010
  Serious: Yes (Hospitalization)
  Sender: FDA-Public Use
  Company Number: US-BAYER-201018770NA

PATIENT
  Age: 21 Year
  Sex: Female
  Weight: 83.9 kg

DRUGS (8)
  1. ALBUTEROL SULFATE AUTOHALER [Concomitant]
  2. VICODIN [Concomitant]
  3. NSAID'S [Concomitant]
  4. PHENERGAN [Concomitant]
  5. DARVON [Concomitant]
  6. NAPROXEN [Concomitant]
  7. ADVAIR DISKUS 100/50 [Concomitant]
  8. YAZ [Suspect]
     Indication: PRODUCT USED FOR UNKNOWN INDICATION
     Dosage: UNK UNK, UNK
     Route: 048
     Dates: start: 20030101, end: 20070101

REACTIONS (4)
  - CHOLELITHIASIS [None]
  - PAIN [None]
  - CHOLECYSTITIS ACUTE [None]
  - CHOLECYSTECTOMY [None]
